FAERS Safety Report 6761200-9 (Version None)
Quarter: 2010Q2

REPORT INFORMATION
  Report Type: 
  Country: None (occurrence: None)
  Receive Date: 20100602
  Receipt Date: 20080410
  Transmission Date: 20101027
  Serious: No
  Sender: FDA-Public Use
  Company Number: 2008-00068

PATIENT
  Age: 52 Year
  Sex: Female
  Weight: 95.2554 kg

DRUGS (5)
  1. ZICAM COLD REMEDY NASAL GEL [Suspect]
     Indication: NASOPHARYNGITIS
     Dosage: QID X SEVERAL YEARS
  2. SYNTHROID [Concomitant]
  3. CELEXA [Concomitant]
  4. TRAZODONE HYDROCHLORIDE [Concomitant]
  5. MAXALT [Concomitant]

REACTIONS (1)
  - ANOSMIA [None]
